FAERS Safety Report 4774084-5 (Version None)
Quarter: 2005Q3

REPORT INFORMATION
  Report Type: 
  Country: None (occurrence: None)
  Receive Date: 20050919
  Receipt Date: 20030902
  Transmission Date: 20060218
  Serious: Yes (Death, Hospitalization, Other)
  Sender: FDA-Public Use
  Company Number: 2003-08-1586

PATIENT
  Age: 67 Year
  Sex: Male
  Weight: 80 kg

DRUGS (2)
  1. FLUCINOM (FLUTAMIDE) TABLETS [Suspect]
     Indication: PROSTATE CANCER
     Dosage: 250 MG TID ORAL
     Route: 048
     Dates: start: 20030301, end: 20030510
  2. TRIPTORELIN INJECTABLE POWDER [Concomitant]

REACTIONS (3)
  - HEPATIC FAILURE [None]
  - PANCREATIC PSEUDOCYST [None]
  - TREATMENT NONCOMPLIANCE [None]
